FAERS Safety Report 7832667 (Version 14)
Quarter: 2015Q1

REPORT INFORMATION
  Report Type: Report from Study
  Country: CA (occurrence: CA)
  Receive Date: 20110228
  Receipt Date: 20150220
  Transmission Date: 20150721
  Serious: Yes (Hospitalization, Other)
  Sender: FDA-Public Use
  Company Number: PHHY2011CA13844

PATIENT
  Age: 78 Year
  Sex: Female

DRUGS (3)
  1. SANDOSTATIN LAR DEPOT [Suspect]
     Active Substance: OCTREOTIDE ACETATE
     Dosage: 30 MG, QMO
     Route: 030
  2. SANDOSTATIN LAR DEPOT [Suspect]
     Active Substance: OCTREOTIDE ACETATE
     Indication: ENTEROCUTANEOUS FISTULA
     Dosage: 20 MG, QMO
     Route: 030
     Dates: start: 20100706
  3. SANDOSTATIN [Suspect]
     Active Substance: OCTREOTIDE ACETATE
     Indication: ENTEROCUTANEOUS FISTULA
     Dosage: 50 UG, TID
     Route: 058
     Dates: start: 20130214

REACTIONS (8)
  - Blood potassium abnormal [Unknown]
  - Fistula discharge [Unknown]
  - Blood sodium abnormal [Unknown]
  - Loss of consciousness [Unknown]
  - Dehydration [Unknown]
  - Vascular occlusion [Unknown]
  - Blood pressure diastolic decreased [Unknown]
  - Feeling abnormal [Unknown]

NARRATIVE: CASE EVENT DATE: 20130214
